FAERS Safety Report 12604351 (Version 3)
Quarter: 2016Q4

REPORT INFORMATION
  Report Type: Spontaneous
  Country: DE (occurrence: DE)
  Receive Date: 20160728
  Receipt Date: 20161128
  Transmission Date: 20170207
  Serious: Yes (Hospitalization, Other)
  Sender: FDA-Public Use
  Company Number: PHHY2016DE100335

PATIENT
  Age: 14 Year
  Sex: Male
  Weight: 47.9 kg

DRUGS (4)
  1. NAPROXEN. [Concomitant]
     Active Substance: NAPROXEN
     Indication: JUVENILE IDIOPATHIC ARTHRITIS
     Dosage: 60 MG, QD
     Route: 048
     Dates: start: 20150601, end: 20160423
  2. METAMIZOLE [Concomitant]
     Active Substance: METAMIZOLE
     Indication: JUVENILE IDIOPATHIC ARTHRITIS
     Dosage: 3 TIMES DAILY (1500MG DAILY)
     Route: 048
     Dates: start: 20160201
  3. ILARIS [Suspect]
     Active Substance: CANAKINUMAB
     Indication: JUVENILE IDIOPATHIC ARTHRITIS
     Dosage: 150 MG, QMO
     Route: 042
     Dates: start: 20160208, end: 20160307
  4. TOCILIZUMAB [Suspect]
     Active Substance: TOCILIZUMAB
     Indication: JUVENILE IDIOPATHIC ARTHRITIS
     Dosage: 400 MG, QMO
     Route: 042
     Dates: start: 20150601, end: 20160111

REACTIONS (2)
  - Faecal calprotectin increased [Unknown]
  - Deafness [Recovered/Resolved]

NARRATIVE: CASE EVENT DATE: 20160224
